FAERS Safety Report 8287758-9 (Version None)
Quarter: 2012Q2

REPORT INFORMATION
  Report Type: 
  Country: None (occurrence: None)
  Receive Date: 20120416
  Receipt Date: 20120409
  Transmission Date: 20120825
  Serious: Yes (Other)
  Sender: FDA-Public Use
  Company Number: SG-B.I. PHARMACEUTICALS,INC./RIDGEFIELD-2012-CS-00478MD

PATIENT
  Age: 25 Year
  Sex: Female

DRUGS (1)
  1. MOBIC [Suspect]

REACTIONS (3)
  - EYE SWELLING [None]
  - CHEILITIS [None]
  - LIP SWELLING [None]
